FAERS Safety Report 13657191 (Version 1)
Quarter: 2017Q2

REPORT INFORMATION
  Report Type: Report from Study
  Country: US (occurrence: US)
  Receive Date: 20170615
  Receipt Date: 20170615
  Transmission Date: 20170830
  Serious: Yes (Hospitalization)
  Sender: FDA-Public Use
  Company Number: US-IGSA-SR10004915

PATIENT
  Age: 56 Year
  Sex: Male
  Weight: 113.6 kg

DRUGS (6)
  1. GAMUNEX-C [Suspect]
     Active Substance: HUMAN IMMUNOGLOBULIN G
     Indication: CHRONIC INFLAMMATORY DEMYELINATING POLYRADICULONEUROPATHY
     Dosage: 80 G, Q.6WK.
     Route: 042
     Dates: start: 20161210, end: 20161210
  2. GAMUNEX-C [Suspect]
     Active Substance: HUMAN IMMUNOGLOBULIN G
     Dosage: 40 G, Q.6WK.
     Route: 042
     Dates: start: 20170507
  3. PREDNISONE. [Concomitant]
     Active Substance: PREDNISONE
     Dosage: 20 MG, QD
     Dates: start: 2017, end: 2017
  4. CALTRATE D                         /00944201/ [Concomitant]
     Dosage: 600 MG, QD
  5. GAMUNEX-C [Suspect]
     Active Substance: HUMAN IMMUNOGLOBULIN G
     Dosage: 80 G, Q.6WK.
     Route: 042
     Dates: start: 2014, end: 20170506
  6. PREDNISONE. [Concomitant]
     Active Substance: PREDNISONE
     Dosage: 60 MG, QD

REACTIONS (5)
  - Limb discomfort [Recovering/Resolving]
  - Disorientation [Recovered/Resolved]
  - Photophobia [Recovered/Resolved]
  - Renal failure [Recovered/Resolved]
  - Dehydration [Recovered/Resolved]

NARRATIVE: CASE EVENT DATE: 20170124
